FAERS Safety Report 4869010-4 (Version None)
Quarter: 2005Q4

REPORT INFORMATION
  Report Type: 
  Country: None (occurrence: None)
  Receive Date: 20051229
  Receipt Date: 20051219
  Transmission Date: 20060501
  Serious: Yes (Other)
  Sender: FDA-Public Use
  Company Number: GB-ABBOTT-05P-167-0320714-00

PATIENT
  Sex: Female

DRUGS (3)
  1. EPILIM TABLETS [Suspect]
     Indication: EPILEPSY
  2. EPILIM TABLETS [Suspect]
  3. CARBAMAZEPINE [Suspect]
     Indication: EPILEPSY

REACTIONS (3)
  - CAESAREAN SECTION [None]
  - CONVULSION [None]
  - GLYCOSURIA [None]
